FAERS Safety Report 25393551 (Version 2)
Quarter: 2025Q3

REPORT INFORMATION
  Report Type: Report from Study
  Country: US (occurrence: US)
  Receive Date: 20250604
  Receipt Date: 20250715
  Transmission Date: 20251020
  Serious: No
  Sender: DR REDDYS
  Company Number: US-DRL-USA-USA/2025/05/007374

PATIENT
  Sex: Male
  Weight: 7.98 kg

DRUGS (2)
  1. JAVYGTOR [Suspect]
     Active Substance: SAPROPTERIN DIHYDROCHLORIDE
     Indication: Phenylketonuria
     Route: 065
  2. JAVYGTOR [Suspect]
     Active Substance: SAPROPTERIN DIHYDROCHLORIDE
     Indication: Hyperphenylalaninaemia

REACTIONS (3)
  - Overdose [Unknown]
  - Product prescribing error [Unknown]
  - Therapy non-responder [Unknown]
